FAERS Safety Report 6437654-4 (Version None)
Quarter: 2009Q4

REPORT INFORMATION
  Report Type: 
  Country: None (occurrence: None)
  Receive Date: 20091112
  Receipt Date: 20091106
  Transmission Date: 20100525
  Serious: Yes (Other)
  Sender: FDA-Public Use
  Company Number: A0815808A

PATIENT
  Sex: Female

DRUGS (2)
  1. LOVAZA [Suspect]
     Indication: DRUG USE FOR UNKNOWN INDICATION
     Dosage: 4G UNKNOWN
     Route: 065
  2. UNKNOWN MEDICATION [Concomitant]

REACTIONS (3)
  - ATRIAL FIBRILLATION [None]
  - PALPITATIONS [None]
  - TACHYCARDIA [None]
